FAERS Safety Report 12640431 (Version 1)
Quarter: 2016Q3

REPORT INFORMATION
  Report Type: Spontaneous
  Country: US (occurrence: US)
  Receive Date: 20160810
  Receipt Date: 20160810
  Transmission Date: 20161109
  Serious: No
  Sender: FDA-Public Use
  Company Number: US-BAYER-2016-152787

PATIENT
  Age: 81 Year
  Sex: Female
  Weight: 54.42 kg

DRUGS (6)
  1. BIOTIN [Concomitant]
     Active Substance: BIOTIN
  2. LEVOTHYROXINE. [Concomitant]
     Active Substance: LEVOTHYROXINE
  3. MIRALAX [Suspect]
     Active Substance: POLYETHYLENE GLYCOL 3350
     Indication: CONSTIPATION
     Dosage: 1 DF, QD
     Route: 048
     Dates: start: 201107
  4. CALCIUM D3 [CALCIUM CARBONATE,COLECALCIFEROL] [Concomitant]
     Active Substance: CALCIUM CARBONATE\CHOLECALCIFEROL
  5. IBUPROFEN. [Concomitant]
     Active Substance: IBUPROFEN
  6. OMEPRAZOL [Concomitant]
     Active Substance: OMEPRAZOLE

REACTIONS (1)
  - Drug ineffective [None]
